FAERS Safety Report 4438492-4 (Version None)
Quarter: 2004Q3

REPORT INFORMATION
  Report Type: 
  Country: None (occurrence: None)
  Receive Date: 20040728
  Receipt Date: 20040317
  Transmission Date: 20050211
  Serious: No
  Sender: FDA-Public Use
  Company Number: USA040362415

PATIENT
  Age: 32 Year
  Sex: Female
  Weight: 50 kg

DRUGS (4)
  1. STRATTERA [Suspect]
     Dosage: 60 MG IN THE MORNING
     Dates: start: 20040201
  2. NEXIUM [Concomitant]
  3. DESOGESTREL W/ESTRADIOL [Concomitant]
  4. CENTRUM [Concomitant]

REACTIONS (3)
  - DERMATITIS CONTACT [None]
  - PRURITUS [None]
  - RASH MACULAR [None]
